FAERS Safety Report 8822683 (Version 1)
Quarter: 2012Q4

REPORT INFORMATION
  Report Type: 
  Country: GB (occurrence: GB)
  Receive Date: 20121003
  Receipt Date: 20121003
  Transmission Date: 20130627
  Serious: Yes (Life-Threatening, Hospitalization)
  Sender: FDA-Public Use
  Company Number: GB-PERRIGO-12GB008391

PATIENT
  Age: 21 Year
  Sex: Female
  Weight: 54 kg

DRUGS (6)
  1. IBUPROFEN 16028/0013 200 MG [Suspect]
     Indication: INTENTIONAL OVERDOSE
     Dosage: 7 full blisters, single
     Route: 048
     Dates: start: 20120829, end: 20120829
  2. AMITRIPTYLINE [Suspect]
     Indication: INTENTIONAL OVERDOSE
     Dosage: UNK, single
     Route: 048
     Dates: start: 20120829, end: 20120829
  3. CO-CODAMOL [Suspect]
     Indication: INTENTIONAL OVERDOSE
     Dosage: UNK, single
     Route: 048
     Dates: start: 20120829, end: 20120829
  4. CODEINE [Suspect]
     Indication: INTENTIONAL OVERDOSE
     Dosage: UNK, single
     Route: 048
     Dates: start: 20120829, end: 20120829
  5. DIAZEPAM [Suspect]
     Indication: INTENTIONAL OVERDOSE
     Dosage: UNK, single
     Route: 048
     Dates: start: 20120829, end: 20120829
  6. SERTRALINE [Suspect]
     Indication: INTENTIONAL OVERDOSE
     Dosage: UNK, single
     Route: 048
     Dates: start: 20120829, end: 20120829

REACTIONS (10)
  - Respiratory depression [Unknown]
  - Intentional overdose [Unknown]
  - Aggression [Unknown]
  - Somnolence [Unknown]
  - Coma scale abnormal [Unknown]
  - Abdominal pain upper [Unknown]
  - Stubbornness [Unknown]
  - Amylase increased [Unknown]
  - Aspartate aminotransferase increased [Unknown]
  - Blood lactate dehydrogenase increased [Unknown]
